FAERS Safety Report 17681699 (Version 4)
Quarter: 2020Q3

REPORT INFORMATION
  Report Type: Report from Study
  Country: AT (occurrence: AT)
  Receive Date: 20200417
  Receipt Date: 20200911
  Transmission Date: 20201102
  Serious: Yes (Hospitalization)
  Sender: FDA-Public Use
  Company Number: AT-EXELIXIS-XL18420028856

PATIENT
  Age: 73 Year
  Sex: Male
  Weight: 113 kg

DRUGS (14)
  1. ATEZOLIZUMAB. [Suspect]
     Active Substance: ATEZOLIZUMAB
     Indication: HEPATOCELLULAR CARCINOMA
     Dosage: 1200 MG, Q3WEEKS
     Route: 042
     Dates: start: 20200206
  2. NEUROMULTIVIT [Concomitant]
     Active Substance: CYANOCOBALAMIN\PYRIDOXINE\THIAMINE
  3. CANDESARTAN PLUSPHARMA [Concomitant]
     Active Substance: CANDESARTAN CILEXETIL
  4. KALIORAL [Concomitant]
  5. DEXAMETHASONE. [Concomitant]
     Active Substance: DEXAMETHASONE
  6. SIMVASTATIN. [Concomitant]
     Active Substance: SIMVASTATIN
  7. THROMBO ASS [Concomitant]
     Active Substance: ASPIRIN
  8. DIAMICRON [Concomitant]
     Active Substance: GLICLAZIDE
  9. JANUMET [Concomitant]
     Active Substance: METFORMIN HYDROCHLORIDE\SITAGLIPTIN PHOSPHATE
  10. LASIX [Concomitant]
     Active Substance: FUROSEMIDE
  11. AMLODIPIN 1A PHARMA GMBH [Concomitant]
     Active Substance: AMLODIPINE BESYLATE
  12. XL184 [Suspect]
     Active Substance: CABOZANTINIB
     Indication: HEPATOCELLULAR CARCINOMA
     Dosage: 40 MG, QD
     Route: 048
     Dates: start: 20200206
  13. NOMEXOR [Concomitant]
     Active Substance: NEBIVOLOL HYDROCHLORIDE
  14. XARELTO [Concomitant]
     Active Substance: RIVAROXABAN

REACTIONS (1)
  - Diarrhoea [Recovered/Resolved]

NARRATIVE: CASE EVENT DATE: 20200408
